FAERS Safety Report 6071641-3 (Version None)
Quarter: 2009Q1

REPORT INFORMATION
  Report Type: 
  Country: None (occurrence: None)
  Receive Date: 20090209
  Receipt Date: 20090209
  Transmission Date: 20090719
  Serious: No
  Sender: FDA-Public Use
  Company Number: None

PATIENT
  Sex: Female
  Weight: 49.4421 kg

DRUGS (1)
  1. PHARMASSURE CALCIUM, MAGNESIUM, AND ZINC WITH COPPER (MFR/LABELER: GNC [Suspect]
     Indication: OSTEOPOROSIS
     Dosage: 1 1/2 TABS 3X/DAY, ORALLY
     Route: 048
     Dates: start: 20081222

REACTIONS (11)
  - ABDOMINAL PAIN [None]
  - ANORECTAL DISORDER [None]
  - BURNING SENSATION [None]
  - DYSPNOEA [None]
  - EXPOSURE TO ALLERGEN [None]
  - PALATAL DISORDER [None]
  - PRURITUS [None]
  - RASH [None]
  - REACTION TO DRUG EXCIPIENTS [None]
  - THROAT IRRITATION [None]
  - URETHRAL DISORDER [None]
